FAERS Safety Report 10531311 (Version 6)
Quarter: 2015Q1

REPORT INFORMATION
  Report Type: Spontaneous
  Country: AU (occurrence: AU)
  Receive Date: 20141021
  Receipt Date: 20150126
  Transmission Date: 20150720
  Serious: Yes (Life-Threatening)
  Sender: FDA-Public Use
  Company Number: AU-PFIZER INC-2014279662

PATIENT
  Age: 68 Year
  Sex: Female
  Weight: 75 kg

DRUGS (23)
  1. BIO-ORGANICS CRANBERRY [Concomitant]
  2. ELOCON [Concomitant]
     Active Substance: MOMETASONE FUROATE
  3. KENACOMB OTIC [Concomitant]
  4. BLACKMORES EXECUTIVE FORMULA B [Concomitant]
  5. FLIXONASE NASULE [Concomitant]
  6. VOLTAREN [Concomitant]
     Active Substance: DICLOFENAC SODIUM
  7. LYRICA [Suspect]
     Active Substance: PREGABALIN
     Dosage: 150 MG, DAILY
     Dates: start: 20130730, end: 20130808
  8. CHONDROITIN SULFATE (BOVINE)\GLUCOSAMINE SULFATE [Concomitant]
     Active Substance: CHONDROITIN SULFATE (BOVINE)\GLUCOSAMINE SULFATE
  9. MOVICOL [Concomitant]
     Active Substance: POLYETHYLENE GLYCOL 3350\POTASSIUM CHLORIDE\SODIUM BICARBONATE\SODIUM CHLORIDE
  10. AMLO [Concomitant]
     Dosage: UNK
  11. PANADOL [Concomitant]
     Active Substance: ACETAMINOPHEN
  12. FEXOFENADINE [Concomitant]
     Active Substance: FEXOFENADINE\FEXOFENADINE HYDROCHLORIDE
  13. VEINS CLEAR [Concomitant]
  14. MAGNESIUM [Concomitant]
     Active Substance: MAGNESIUM
  15. NATRILIX [Concomitant]
     Active Substance: INDAPAMIDE
  16. SOMAC [Concomitant]
     Active Substance: PANTOPRAZOLE SODIUM
  17. NATURE^S OWN GARLIC AND C HORSERADISH WITH FENUGREEK AND MARSHMALLOW [Concomitant]
  18. PANADOL RAPID [Concomitant]
  19. STILNOX [Concomitant]
     Active Substance: ZOLPIDEM TARTRATE
  20. SWISSE PROFESSIONAL HIGH STRENGTH WILD FISH OIL [Concomitant]
     Dosage: 1000 MG, UNK
  21. BIO ORGANICS HEART HEALTH CO ENZYME Q10 [Concomitant]
  22. CALCIUM [Concomitant]
     Active Substance: CALCIUM
  23. TRAMAL - SLOW RELEASE [Concomitant]

REACTIONS (5)
  - Incontinence [Not Recovered/Not Resolved]
  - Visual impairment [Not Recovered/Not Resolved]
  - Depression [Not Recovered/Not Resolved]
  - Suicidal ideation [Not Recovered/Not Resolved]
  - Anxiety [Not Recovered/Not Resolved]

NARRATIVE: CASE EVENT DATE: 2013
